FAERS Safety Report 18052500 (Version 1)
Quarter: 2020Q3

REPORT INFORMATION
  Report Type: Spontaneous
  Country: CN (occurrence: CN)
  Receive Date: 20200722
  Receipt Date: 20200722
  Transmission Date: 20201103
  Serious: Yes (Other)
  Sender: FDA-Public Use
  Company Number: CN-DRREDDYS-GPV/CHN/20/0125273

PATIENT
  Age: 45 Year
  Sex: Male
  Weight: 84 kg

DRUGS (3)
  1. OLANZAPINE. [Suspect]
     Active Substance: OLANZAPINE
     Indication: HYPERTENSION
  2. OLANZAPINE. [Suspect]
     Active Substance: OLANZAPINE
     Indication: CHRONIC SINUSITIS
  3. OLANZAPINE. [Suspect]
     Active Substance: OLANZAPINE
     Indication: NEOPLASM MALIGNANT
     Dosage: 5.000000MG,QD
     Route: 048
     Dates: start: 20200709, end: 20200710

REACTIONS (2)
  - Sluggishness [Recovering/Resolving]
  - Somnolence [Recovered/Resolved]

NARRATIVE: CASE EVENT DATE: 20200709
